FAERS Safety Report 15850381 (Version 1)
Quarter: 2019Q1

REPORT INFORMATION
  Report Type: Spontaneous
  Country: GB (occurrence: GB)
  Receive Date: 20190121
  Receipt Date: 20190121
  Transmission Date: 20190417
  Serious: Yes (Hospitalization)
  Sender: FDA-Public Use
  Company Number: GB-LINDE-GB-LHC-2019009

PATIENT
  Age: 37 Year
  Sex: Female

DRUGS (1)
  1. COMPRESSED MEDICAL OXYGEN [Suspect]
     Active Substance: OXYGEN
     Indication: PNEUMONIA
     Route: 055

REACTIONS (3)
  - Accidental underdose [Unknown]
  - Medication error [Unknown]
  - Device malfunction [Unknown]
